FAERS Safety Report 15723344 (Version 2)
Quarter: 2019Q2

REPORT INFORMATION
  Report Type: Spontaneous
  Country: US (occurrence: US)
  Receive Date: 20181214
  Receipt Date: 20190603
  Transmission Date: 20190711
  Serious: Yes (Other)
  Sender: FDA-Public Use
  Company Number: US-SA-2018SA336912

PATIENT
  Age: 56 Year
  Sex: Female

DRUGS (3)
  1. ADRIAMYCIN [Concomitant]
     Active Substance: DOXORUBICIN HYDROCHLORIDE
  2. TAXOTERE [Suspect]
     Active Substance: DOCETAXEL
     Dosage: 20 MG, Q3W
     Route: 042
     Dates: start: 20060814, end: 20060814
  3. TAXOTERE [Suspect]
     Active Substance: DOCETAXEL
     Indication: BREAST CANCER FEMALE
     Dosage: 20 MG, Q3W
     Route: 042
     Dates: start: 20060501, end: 20060501

REACTIONS (6)
  - Alopecia [Recovering/Resolving]
  - Impaired quality of life [Unknown]
  - Emotional distress [Unknown]
  - Anxiety [Unknown]
  - Pain [Unknown]
  - Psychological trauma [Unknown]
